FAERS Safety Report 5041531-3 (Version None)
Quarter: 2006Q2

REPORT INFORMATION
  Report Type: 
  Country: None (occurrence: None)
  Receive Date: 20060627
  Receipt Date: 20060612
  Transmission Date: 20061013
  Serious: No
  Sender: FDA-Public Use
  Company Number: 35218

PATIENT
  Age: 60 Year
  Sex: Female

DRUGS (5)
  1. NEVANAC [Suspect]
     Indication: PROPHYLAXIS
     Dates: start: 20051110, end: 20051114
  2. FLAREX [Concomitant]
  3. VIGAMOX [Concomitant]
  4. SYSTANE LUBRICANT EYE DROPS [Concomitant]
  5. TETRACAINE 0.5% STERI-UNITS [Concomitant]

REACTIONS (2)
  - CORNEAL OPACITY [None]
  - POST PROCEDURAL COMPLICATION [None]
